FAERS Safety Report 7239579-3 (Version None)
Quarter: 2011Q1

REPORT INFORMATION
  Report Type: 
  Country: None (occurrence: None)
  Receive Date: 20110121
  Receipt Date: 20110114
  Transmission Date: 20110831
  Serious: No
  Sender: FDA-Public Use
  Company Number: US-B.I. PHARMACEUTICALS,INC./RIDGEFIELD-2011-BP-01284BP

PATIENT
  Sex: Male

DRUGS (6)
  1. LISINOPRIL [Concomitant]
     Dosage: 20 MG
     Route: 048
  2. AMITRIPTYLINE [Concomitant]
     Indication: INSOMNIA
     Dosage: 40 MG
     Route: 048
  3. LOVASTATIN [Concomitant]
     Indication: FAMILIAL RISK FACTOR
     Dosage: 20 MG
     Route: 048
  4. CARVEDILOL [Concomitant]
     Indication: ARRHYTHMIA
     Dosage: 12.5 MG
     Route: 048
  5. ASPIRIN [Concomitant]
     Indication: PROPHYLAXIS
     Dosage: 81 MG
     Route: 048
  6. PRADAXA [Suspect]
     Indication: ATRIAL FIBRILLATION
     Dosage: 300 MG
     Route: 048
     Dates: start: 20101101

REACTIONS (2)
  - CHROMATURIA [None]
  - URINE ODOUR ABNORMAL [None]
